FAERS Safety Report 4776213-6 (Version None)
Quarter: 2005Q3

REPORT INFORMATION
  Report Type: 
  Country: None (occurrence: None)
  Receive Date: 20050914
  Receipt Date: 20050211
  Transmission Date: 20060218
  Serious: Yes (Other)
  Sender: FDA-Public Use
  Company Number: 163-20785-05020433

PATIENT
  Sex: Male

DRUGS (1)
  1. THALIDOMIDE/PLACEBO (CAPSULES) [Suspect]
     Indication: PROSTATE CANCER
     Dosage: ORAL
     Route: 048

REACTIONS (1)
  - DYSPNOEA [None]
